FAERS Safety Report 8355573-3 (Version None)
Quarter: 2012Q2

REPORT INFORMATION
  Report Type: 
  Country: None (occurrence: None)
  Receive Date: 20120513
  Receipt Date: 20120502
  Transmission Date: 20120825
  Serious: Yes (Other)
  Sender: FDA-Public Use
  Company Number: US-ELI_LILLY_AND_COMPANY-US201110005778

PATIENT
  Sex: Female

DRUGS (1)
  1. FORTEO [Suspect]
     Indication: OSTEOPOROSIS
     Dosage: 20 UG, QD
     Route: 065
     Dates: start: 20110922

REACTIONS (7)
  - CEREBROVASCULAR ACCIDENT [None]
  - PAIN [None]
  - NAUSEA [None]
  - ANXIETY [None]
  - PELVIC FRACTURE [None]
  - CARDIAC DISORDER [None]
  - PAIN IN EXTREMITY [None]
